FAERS Safety Report 9662531 (Version 2)
Quarter: 2013Q4

REPORT INFORMATION
  Report Type: Spontaneous
  Country: US (occurrence: US)
  Receive Date: 20131031
  Receipt Date: 20131031
  Transmission Date: 20140711
  Serious: No
  Sender: FDA-Public Use
  Company Number: US-PURDUE-USA-2010-0048861

PATIENT
  Age: 37 Year
  Sex: Female

DRUGS (2)
  1. OXYCONTIN (NDA 22-272) [Suspect]
     Indication: BACK PAIN
     Dosage: 80 MG, Q8H
     Route: 048
     Dates: start: 20100924
  2. OXYCODONE HYDROCHLORIDE (SIMILAR TO NDA 20-553) [Concomitant]
     Indication: BREAKTHROUGH PAIN
     Dosage: 20 MG, Q6H PRN

REACTIONS (5)
  - Weight decreased [Recovered/Resolved]
  - Inadequate analgesia [Recovered/Resolved]
  - Nausea [Recovered/Resolved]
  - Vomiting [Recovered/Resolved]
  - Abdominal pain upper [Recovered/Resolved]
